FAERS Safety Report 25680775 (Version 2)
Quarter: 2025Q3

REPORT INFORMATION
  Report Type: Spontaneous
  Country: JP (occurrence: JP)
  Receive Date: 20250814
  Receipt Date: 20250902
  Transmission Date: 20251021
  Serious: Yes (Hospitalization)
  Sender: ROCHE
  Company Number: JP-ROCHE-10000358500

PATIENT
  Age: 70 Year
  Sex: Male

DRUGS (12)
  1. CAPECITABINE [Suspect]
     Active Substance: CAPECITABINE
     Indication: Colon cancer
     Dosage: 2000 MG/M^2 TWICE DAILY BEGINNING FROM THE EVENING OF DAY 1 UNTIL THE MORNING OF DAY 15; THIS REGIME
     Route: 048
  2. AVASTIN [Suspect]
     Active Substance: BEVACIZUMAB
     Indication: Colon cancer
     Route: 042
  3. OXALIPLATIN [Suspect]
     Active Substance: OXALIPLATIN
     Indication: Colon cancer
     Route: 042
  4. CLOPIDOGREL [Concomitant]
     Active Substance: CLOPIDOGREL BISULFATE
  5. VALSARTAN [Concomitant]
     Active Substance: VALSARTAN
  6. IFENPRODIL [Concomitant]
     Active Substance: IFENPRODIL
  7. FOLIC ACID [Concomitant]
     Active Substance: FOLIC ACID
  8. TEPRENONE [Concomitant]
     Active Substance: TEPRENONE
  9. PALONOSETRON [Concomitant]
     Active Substance: PALONOSETRON
  10. DEXAMETHASONE [Concomitant]
     Active Substance: DEXAMETHASONE
  11. APREPITANT [Concomitant]
     Active Substance: APREPITANT
  12. IRINOTECAN [Concomitant]
     Active Substance: IRINOTECAN

REACTIONS (1)
  - Inappropriate antidiuretic hormone secretion [Recovered/Resolved]
